FAERS Safety Report 14034423 (Version 1)
Quarter: 2017Q4

REPORT INFORMATION
  Report Type: Spontaneous
  Country: US (occurrence: US)
  Receive Date: 20171003
  Receipt Date: 20171003
  Transmission Date: 20180321
  Serious: Yes (Death, Hospitalization, Other)
  Sender: FDA-Public Use
  Company Number: US-SA-2017SA163897

PATIENT
  Age: 50 Year
  Sex: Male
  Weight: 107 kg

DRUGS (7)
  1. ADDERALL [Concomitant]
     Active Substance: AMPHETAMINE ASPARTATE\AMPHETAMINE SULFATE\DEXTROAMPHETAMINE SACCHARATE\DEXTROAMPHETAMINE SULFATE
     Route: 065
  2. DIPROLENE [Concomitant]
     Active Substance: BETAMETHASONE DIPROPIONATE
     Route: 061
  3. TRADOL [Concomitant]
     Active Substance: TRAMADOL HYDROCHLORIDE
     Route: 048
  4. BACLOFEN. [Concomitant]
     Active Substance: BACLOFEN
     Route: 065
  5. TREXIMET [Concomitant]
     Active Substance: NAPROXEN SODIUM\SUMATRIPTAN SUCCINATE
     Indication: MIGRAINE
     Dosage: DOSE: 85-500
  6. AMOXICILLIN. [Suspect]
     Active Substance: AMOXICILLIN
     Indication: UPPER RESPIRATORY TRACT INFECTION
     Route: 065
     Dates: start: 2017, end: 2017
  7. LEMTRADA [Suspect]
     Active Substance: ALEMTUZUMAB
     Indication: RELAPSING-REMITTING MULTIPLE SCLEROSIS
     Route: 041
     Dates: start: 20160620, end: 20160622

REACTIONS (100)
  - Blast cell count increased [Unknown]
  - Acute kidney injury [Unknown]
  - Hypoxia [Unknown]
  - Immunodeficiency [Unknown]
  - Bronchitis viral [Unknown]
  - Blood magnesium increased [Unknown]
  - PO2 increased [Unknown]
  - Blood alkaline phosphatase increased [Unknown]
  - Alanine aminotransferase increased [Unknown]
  - Troponin increased [Unknown]
  - Bronchomalacia [Unknown]
  - Dehydration [Unknown]
  - Hyperkalaemia [Unknown]
  - Sepsis [Unknown]
  - Tachypnoea [Unknown]
  - Thrombocytopenia [Unknown]
  - Citrobacter infection [Unknown]
  - Blood creatinine increased [Unknown]
  - Mean cell haemoglobin decreased [Unknown]
  - Platelet count increased [Unknown]
  - Urine albumin/creatinine ratio increased [Unknown]
  - Liver function test increased [Unknown]
  - PCO2 increased [Unknown]
  - Cough [Unknown]
  - Heart rate increased [Unknown]
  - Pneumonia [Unknown]
  - Blood urea increased [Unknown]
  - Neutrophil count increased [Unknown]
  - Blood bicarbonate decreased [Unknown]
  - Lipase decreased [Unknown]
  - Monocyte percentage decreased [Unknown]
  - Metabolic acidosis [Fatal]
  - Productive cough [Unknown]
  - Hypophagia [Unknown]
  - Respiratory rate increased [Unknown]
  - Thyroid mass [Unknown]
  - Hyperhidrosis [Unknown]
  - Cardiac failure congestive [Unknown]
  - Diarrhoea [Unknown]
  - Pyrexia [Unknown]
  - Procalcitonin increased [Unknown]
  - Haemoglobin decreased [Unknown]
  - Oxygen saturation decreased [Unknown]
  - Lymphocyte count decreased [Unknown]
  - Wheezing [Unknown]
  - Dyspepsia [Unknown]
  - Upper respiratory tract infection [Unknown]
  - Mean cell volume decreased [Unknown]
  - Blood lactic acid increased [Unknown]
  - Haptoglobin increased [Unknown]
  - Haematocrit decreased [Unknown]
  - Blood bicarbonate decreased [Unknown]
  - Aspartate aminotransferase increased [Unknown]
  - Mean cell haemoglobin concentration decreased [Unknown]
  - Prothrombin time prolonged [Unknown]
  - Activated partial thromboplastin time prolonged [Unknown]
  - Urine output decreased [Unknown]
  - Platelet count decreased [Unknown]
  - Cardiac arrest [Unknown]
  - Anxiety [Unknown]
  - Hepatic lesion [Unknown]
  - Left ventricular hypertrophy [Unknown]
  - Acute respiratory distress syndrome [Unknown]
  - Leukocytosis [Unknown]
  - Encephalopathy [Unknown]
  - Acute respiratory failure [Unknown]
  - Hypotension [Unknown]
  - Blood potassium increased [Unknown]
  - Red cell distribution width increased [Unknown]
  - Anion gap increased [Unknown]
  - Protein total decreased [Unknown]
  - Blood albumin decreased [Unknown]
  - PO2 decreased [Unknown]
  - Blood lactate dehydrogenase increased [Unknown]
  - Opiates positive [Unknown]
  - Urine abnormality [Unknown]
  - Red blood cell count decreased [Unknown]
  - White blood cell count decreased [Unknown]
  - Atelectasis [Unknown]
  - Anaemia [Unknown]
  - Fatigue [Unknown]
  - Chills [Unknown]
  - Blood calcium decreased [Unknown]
  - Carbon dioxide decreased [Unknown]
  - Blood calcium increased [Unknown]
  - Blood pH decreased [Unknown]
  - PCO2 decreased [Unknown]
  - Carbon dioxide decreased [Unknown]
  - Blood fibrinogen increased [Unknown]
  - Fibrin D dimer increased [Unknown]
  - Lymphocyte percentage decreased [Unknown]
  - Pericardial effusion [Unknown]
  - Pleural effusion [Unknown]
  - Dyspnoea [Unknown]
  - Tachycardia [Unknown]
  - Blood glucose increased [Unknown]
  - Blood uric acid increased [Unknown]
  - Blood phosphorus increased [Unknown]
  - Albumin urine present [Unknown]
  - Blood calcium decreased [Unknown]

NARRATIVE: CASE EVENT DATE: 20170222
